FAERS Safety Report 9206468 (Version 2)
Quarter: 2013Q2

REPORT INFORMATION
  Report Type: Spontaneous
  Country: BE (occurrence: None)
  Receive Date: 20130401
  Receipt Date: 20130416
  Transmission Date: 20140414
  Serious: Yes (Other)
  Sender: FDA-Public Use
  Company Number: DSM-2013-00362

PATIENT
  Age: 68 Year
  Sex: Male
  Weight: 80 kg

DRUGS (8)
  1. SEVIKAR HCT [Suspect]
     Indication: HYPERTENSION
     Dosage: 40/5/12.5 MG (1 IN 1 D) ORAL
     Route: 048
     Dates: start: 20120201, end: 20130301
  2. GLURENORM (GLIQUIDONE) (GLIQUIDONE) [Concomitant]
  3. COVERSYL (PERINDOPRIL) (10) (PERINDOPRIL) [Concomitant]
  4. TEVETEN (EPROSARTAN) (12.5) (EPROSARTAN) [Concomitant]
  5. ASAFLOW (ACETYLSALICYCLIC ACID) (80) (ACETYLSALICYLIC ACID) [Concomitant]
  6. BISOPROLOL (BISOPROLOL) (5 MILLIGRAM) (BISOPROLOL) [Concomitant]
  7. MOXONIDINE (MOXONIDINE) (0.4 MILLIGRAM) (MOXONIDINE) [Concomitant]
  8. ZANIDIP (LERCANIDIPINE HYDROCHLORIDE) (10 MILLIGRAM) (LERCANIDIPINE HYDROCHLORIDE) [Concomitant]

REACTIONS (5)
  - Eczema [None]
  - Oedema mouth [None]
  - Local swelling [None]
  - Food allergy [None]
  - Angioedema [None]
